FAERS Safety Report 11180573 (Version 2)
Quarter: 2016Q2

REPORT INFORMATION
  Report Type: Spontaneous
  Country: US (occurrence: US)
  Receive Date: 20150611
  Receipt Date: 20160616
  Transmission Date: 20160815
  Serious: Yes (Other)
  Sender: FDA-Public Use
  Company Number: US-PFIZER INC-2015191857

PATIENT
  Age: 65 Year
  Sex: Female
  Weight: 61 kg

DRUGS (1)
  1. CHANTIX [Suspect]
     Active Substance: VARENICLINE TARTRATE
     Indication: SMOKING CESSATION THERAPY
     Dosage: UNK
     Dates: start: 20150514, end: 2015

REACTIONS (16)
  - Hallucination [Unknown]
  - Insomnia [Unknown]
  - Alopecia [Unknown]
  - Nausea [Not Recovered/Not Resolved]
  - Mood altered [Unknown]
  - Decreased appetite [Unknown]
  - Somnolence [Unknown]
  - Muscle spasms [Unknown]
  - Mood swings [Unknown]
  - Rash [Recovering/Resolving]
  - Delusion [Unknown]
  - Headache [Unknown]
  - Constipation [Unknown]
  - Swelling face [Not Recovered/Not Resolved]
  - Eye swelling [Unknown]
  - Scar [Unknown]

NARRATIVE: CASE EVENT DATE: 2015
